FAERS Safety Report 9655956 (Version 3)
Quarter: 2014Q1

REPORT INFORMATION
  Report Type: Spontaneous
  Country: US (occurrence: US)
  Receive Date: 20131030
  Receipt Date: 20140202
  Transmission Date: 20141002
  Serious: No
  Sender: FDA-Public Use
  Company Number: US-009507513-1310USA013778

PATIENT
  Age: 25 Year
  Sex: Female
  Weight: 77.98 kg

DRUGS (1)
  1. NEXPLANON [Suspect]
     Indication: CONTRACEPTION
     Dosage: 68 MG RADIOPAQUE; ONE ROD / THREE YEARS
     Route: 059
     Dates: start: 20131010, end: 20131028

REACTIONS (5)
  - Implant site erosion [Recovered/Resolved]
  - Device expulsion [Recovered/Resolved]
  - Implant site discharge [Unknown]
  - Pain of skin [Recovered/Resolved]
  - Implant site scar [Not Recovered/Not Resolved]
